FAERS Safety Report 21677643 (Version 1)
Quarter: 2022Q4

REPORT INFORMATION
  Report Type: Report from Study
  Country: US (occurrence: US)
  Receive Date: 20221203
  Receipt Date: 20221203
  Transmission Date: 20230113
  Serious: No
  Sender: FDA-Public Use
  Company Number: US-002147023-NVSC2022US281184

PATIENT
  Sex: Female

DRUGS (1)
  1. COSENTYX [Suspect]
     Active Substance: SECUKINUMAB
     Indication: Psoriasis
     Dosage: 300 MG, QW (2 PENS 150MG / ML EACH)
     Route: 058
     Dates: start: 20220913

REACTIONS (3)
  - Dermatitis psoriasiform [Recovering/Resolving]
  - Guttate psoriasis [Recovering/Resolving]
  - Rash [Recovering/Resolving]
